FAERS Safety Report 9807525 (Version 1)
Quarter: 2014Q1

REPORT INFORMATION
  Report Type: Spontaneous
  Country: US (occurrence: US)
  Receive Date: 20140110
  Receipt Date: 20140110
  Transmission Date: 20141002
  Serious: No
  Sender: FDA-Public Use
  Company Number: US-SANOFI-AVENTIS-2012SA092428

PATIENT
  Sex: Female

DRUGS (3)
  1. PLAVIX [Suspect]
     Dates: start: 20121213
  2. PLAVIX [Concomitant]
  3. CIPROFLOXACIN [Concomitant]

REACTIONS (2)
  - Muscle spasms [Not Recovered/Not Resolved]
  - Chest pain [Not Recovered/Not Resolved]
